FAERS Safety Report 25238882 (Version 1)
Quarter: 2025Q2

REPORT INFORMATION
  Report Type: Spontaneous
  Country: US (occurrence: US)
  Receive Date: 20250425
  Receipt Date: 20250425
  Transmission Date: 20250717
  Serious: Yes (Other)
  Sender: AMGEN
  Company Number: US-AMGEN-USASP2025080102

PATIENT
  Age: 16 Year
  Sex: Female

DRUGS (3)
  1. XGEVA [Suspect]
     Active Substance: DENOSUMAB
     Indication: Bone giant cell tumour benign
     Dosage: UNK UNK, QWK
     Route: 065
  2. XGEVA [Suspect]
     Active Substance: DENOSUMAB
     Dosage: UNK UNK, QMO
     Route: 065
     Dates: start: 201911
  3. Triancil [Concomitant]
     Indication: Bone giant cell tumour benign
     Dosage: UNK UNK, QWK
     Route: 026
     Dates: start: 201911

REACTIONS (2)
  - Bone giant cell tumour benign [Unknown]
  - Off label use [Unknown]
